FAERS Safety Report 12221530 (Version 2)
Quarter: 2016Q2

REPORT INFORMATION
  Report Type: Spontaneous
  Country: PT (occurrence: PT)
  Receive Date: 20160330
  Receipt Date: 20160415
  Transmission Date: 20160815
  Serious: Yes (Other)
  Sender: FDA-Public Use
  Company Number: PT-NORTHSTAR HEALTHCARE HOLDINGS-PT-2016NSR001383

PATIENT

DRUGS (8)
  1. INDAPAMIDE. [Suspect]
     Active Substance: INDAPAMIDE
     Indication: HYPERTENSION
     Dosage: 2.5 MG, QD
  2. ENALAPRIL [Suspect]
     Active Substance: ENALAPRIL
     Indication: HYPERTENSION
     Dosage: 20 MG, BID
  3. PROPRANOLOL HYDROCHLORIDE. [Suspect]
     Active Substance: PROPRANOLOL HYDROCHLORIDE
     Indication: RENAL ARTERY STENOSIS
     Dosage: 40 MG, BID
  4. PROPRANOLOL HYDROCHLORIDE. [Suspect]
     Active Substance: PROPRANOLOL HYDROCHLORIDE
     Indication: HYPERTENSION
     Dosage: UNK, INCREASE FROM 40 MG, BID
  5. INDAPAMIDE. [Suspect]
     Active Substance: INDAPAMIDE
     Indication: RENAL ARTERY STENOSIS
  6. AMLODIPINE [Suspect]
     Active Substance: AMLODIPINE BESYLATE
     Indication: HYPERTENSION
     Dosage: 10 MG, QD
  7. AMLODIPINE [Suspect]
     Active Substance: AMLODIPINE BESYLATE
     Indication: RENAL ARTERY STENOSIS
  8. ENALAPRIL [Suspect]
     Active Substance: ENALAPRIL
     Indication: RENAL ARTERY STENOSIS

REACTIONS (4)
  - Syncope [Recovered/Resolved]
  - Drug ineffective [Unknown]
  - Hypertension [Unknown]
  - Bradycardia [Recovered/Resolved]
